FAERS Safety Report 9299877 (Version 1)
Quarter: 2013Q1

REPORT INFORMATION
  Report Type: Spontaneous
  Country: US (occurrence: None)
  Receive Date: 20121227
  Receipt Date: 20121227
  Transmission Date: 20140127
  Serious: No
  Sender: FDA-Public Use
  Company Number: PHEH2012US023079

PATIENT
  Age: 70 Year
  Sex: Female

DRUGS (18)
  1. AFINITOR [Suspect]
     Indication: BREAST CANCER
  2. EXEMESTAN (EXEMESTANE) TABLET [Concomitant]
  3. LISINOPRIL (LISINOPRIL) [Concomitant]
  4. HYDROCHLOROTH) (HYDROCHLOROTHIAZIDE) CAPSULE [Concomitant]
  5. PINDOLOC-R (PINDOLOL) TABLET [Concomitant]
  6. GABAPENTIN (GABAPENTIN) TABLET [Concomitant]
  7. PRILOSEC (OMEPRAZOLE) CAPSULE [Concomitant]
  8. MAGNESIUM (MAGNESIUM) TABLET [Concomitant]
  9. LECITHIN (LECITHIN) CAPSULE [Concomitant]
  10. VITAMIN B12 (CYANOCOBALAMIN) TABLET [Concomitant]
  11. FISH OIL (FISH OIL) [Concomitant]
  12. CALCIUM (CALCIUM) TABLET [Concomitant]
  13. MULTI-VIT (VITAMINES NOS) CALCIUM [Concomitant]
  14. POTASSIUM (POTASSIUM) TABLET [Concomitant]
  15. TYLENOL (PARACETAMOL) TABLET [Concomitant]
  16. TYLENOL PM (DIPHENHYDRAMINE HYDROCHLORIDE, PARACETAMOL) TABLET [Concomitant]
  17. VITAMIN D3 (COLECALCIFEROL) CAPSULE [Concomitant]
  18. ASA (ACETYLSALICYLID ADID) TABLET [Concomitant]

REACTIONS (1)
  - Diarrhoea [None]
